FAERS Safety Report 11807281 (Version 1)
Quarter: 2015Q4

REPORT INFORMATION
  Report Type: Other
  Country: KR (occurrence: KR)
  Receive Date: 20151207
  Receipt Date: 20151207
  Transmission Date: 20160305
  Serious: Yes (Hospitalization)
  Sender: FDA-Public Use
  Company Number: KR-WARNER CHILCOTT, LLC-1045126

PATIENT
  Age: 56 Year
  Sex: Female
  Weight: 73.18 kg

DRUGS (1)
  1. ASACOL [Suspect]
     Active Substance: MESALAMINE
     Indication: COLITIS

REACTIONS (13)
  - Oedema peripheral [None]
  - Abdominal distension [None]
  - Lymphadenopathy [None]
  - Vomiting [None]
  - Protein-losing gastroenteropathy [None]
  - Abdominal lymphadenopathy [None]
  - Abdominal tenderness [None]
  - Gastrointestinal erosion [None]
  - Hypoproteinaemia [None]
  - Gastric mucosal hypertrophy [None]
  - Nausea [None]
  - Epigastric discomfort [None]
  - Diarrhoea [None]
